FAERS Safety Report 18669874 (Version 2)
Quarter: 2020Q4

REPORT INFORMATION
  Report Type: Spontaneous
  Country: BR (occurrence: BR)
  Receive Date: 20201228
  Receipt Date: 20201229
  Transmission Date: 20210114
  Serious: Yes (Other)
  Sender: FDA-Public Use
  Company Number: BR-PFIZER INC-2020509875

PATIENT
  Age: 92 Year
  Sex: Male

DRUGS (1)
  1. DETRUSITOL [Suspect]
     Active Substance: TOLTERODINE TARTRATE
     Dosage: UNK
     Dates: start: 2019, end: 20201212

REACTIONS (4)
  - Anxiety [Unknown]
  - Prostate cancer [Unknown]
  - Urinary incontinence [Unknown]
  - Feeling hot [Unknown]

NARRATIVE: CASE EVENT DATE: 20201212
